FAERS Safety Report 8575875-5 (Version None)
Quarter: 2012Q2

REPORT INFORMATION
  Report Type: 
  Country: None (occurrence: None)
  Receive Date: 20120423
  Receipt Date: 20091224
  Transmission Date: 20120825
  Serious: Yes (Hospitalization)
  Sender: FDA-Public Use
  Company Number: PHEH2009US17045

PATIENT
  Sex: Female

DRUGS (12)
  1. LOVENOX [Concomitant]
  2. GABAPENTIN [Concomitant]
  3. PENICILLIN [Concomitant]
  4. HYDROXYUREA [Concomitant]
  5. TRAZODONE HCL [Concomitant]
  6. NAPROXEN [Concomitant]
  7. PRILOSEC [Concomitant]
  8. ASPIRIN [Concomitant]
  9. FOLIC ACID [Concomitant]
  10. PAROXETIN (PAROXETIN) [Concomitant]
  11. EXJADE [Suspect]
     Indication: IRON OVERLOAD
     Dosage: 2500 MG DAILY, 30MG/KG DAY, ORAL
     Route: 048
     Dates: start: 20091118
  12. EXJADE [Suspect]
     Indication: SERUM FERRITIN INCREASED
     Dosage: 2500 MG DAILY, 30MG/KG DAY, ORAL
     Route: 048
     Dates: start: 20091118

REACTIONS (4)
  - PRURITUS [None]
  - PAIN [None]
  - SICKLE CELL ANAEMIA WITH CRISIS [None]
  - SERUM FERRITIN INCREASED [None]
